FAERS Safety Report 23938330 (Version 1)
Quarter: 2024Q2

REPORT INFORMATION
  Report Type: Spontaneous
  Country: US (occurrence: US)
  Receive Date: 20240604
  Receipt Date: 20240604
  Transmission Date: 20240716
  Serious: Yes (Death)
  Sender: FDA-Public Use
  Company Number: US-JNJFOC-20240572225

PATIENT
  Age: 57 Year
  Sex: Male
  Weight: 134 kg

DRUGS (1)
  1. CARVYKTI [Suspect]
     Active Substance: CILTACABTAGENE AUTOLEUCEL
     Indication: Plasma cell myeloma
     Dosage: STRENGTH: 1X10E8
     Route: 042
     Dates: start: 20240418, end: 20240418

REACTIONS (2)
  - Febrile neutropenia [Fatal]
  - Cytokine release syndrome [Fatal]
